FAERS Safety Report 23880203 (Version 1)
Quarter: 2024Q2

REPORT INFORMATION
  Report Type: Report from Study
  Country: US (occurrence: US)
  Receive Date: 20240521
  Receipt Date: 20240521
  Transmission Date: 20240716
  Serious: Yes (Hospitalization)
  Sender: FDA-Public Use
  Company Number: US-JAZZ PHARMACEUTICALS-2022-US-030581

PATIENT
  Sex: Female

DRUGS (3)
  1. EPIDIOLEX [Suspect]
     Active Substance: CANNABIDIOL
     Indication: Epilepsy
     Dosage: (MAINTENANCE DOSE)
     Dates: start: 202112
  2. EPIDIOLEX [Suspect]
     Active Substance: CANNABIDIOL
     Dosage: 6.8 MILLILITRE
     Route: 048
     Dates: start: 20211111
  3. EPIDIOLEX [Suspect]
     Active Substance: CANNABIDIOL
     Dosage: 6.8 MILLILITER, BID
     Route: 048
     Dates: start: 202111

REACTIONS (5)
  - Abnormal behaviour [Unknown]
  - Fall [Unknown]
  - Pain [Unknown]
  - Seizure [Unknown]
  - Emergency care [Unknown]
